FAERS Safety Report 8164244-8 (Version None)
Quarter: 2012Q1

REPORT INFORMATION
  Report Type: 
  Country: None (occurrence: None)
  Receive Date: 20120224
  Receipt Date: 20120110
  Transmission Date: 20120608
  Serious: No
  Sender: FDA-Public Use
  Company Number: US-ASTRAZENECA-2012SE01877

PATIENT
  Sex: Male

DRUGS (1)
  1. VIMOVO [Suspect]
     Dosage: 500MG/20MG
     Route: 048

REACTIONS (1)
  - ARRHYTHMIA [None]
